FAERS Safety Report 9263072 (Version 1)
Quarter: 2013Q2

REPORT INFORMATION
  Report Type: Spontaneous
  Country: US (occurrence: None)
  Receive Date: 20130426
  Receipt Date: 20130426
  Transmission Date: 20140414
  Serious: Yes (Other)
  Sender: FDA-Public Use
  Company Number: None

PATIENT
  Age: 71 Year
  Sex: Female
  Weight: 72.58 kg

DRUGS (1)
  1. LEVOFLOXACIN [Suspect]
     Dosage: ONE TABLET
     Route: 048
     Dates: start: 20130408, end: 20130408

REACTIONS (7)
  - Insomnia [None]
  - Joint swelling [None]
  - Lip swelling [None]
  - Eye swelling [None]
  - Swelling face [None]
  - Dizziness [None]
  - Dizziness [None]
